FAERS Safety Report 9030895 (Version 1)
Quarter: 2013Q1

REPORT INFORMATION
  Report Type: Spontaneous
  Country: IN (occurrence: IN)
  Receive Date: 20130123
  Receipt Date: 20130123
  Transmission Date: 20140127
  Serious: Yes (Death)
  Sender: FDA-Public Use
  Company Number: IN-BRISTOL-MYERS SQUIBB COMPANY-17307125

PATIENT
  Age: 43 Year
  Sex: Male

DRUGS (1)
  1. SPRYCEL (CML) TABS 50 MG [Suspect]
     Dates: start: 20121124

REACTIONS (1)
  - Accident [Fatal]
